FAERS Safety Report 12780263 (Version 1)
Quarter: 2016Q3

REPORT INFORMATION
  Report Type: Spontaneous
  Country: US (occurrence: US)
  Receive Date: 20160926
  Receipt Date: 20160926
  Transmission Date: 20161109
  Serious: Yes (Hospitalization)
  Sender: FDA-Public Use
  Company Number: US-NOVOPROD-510892

PATIENT
  Age: 55 Year
  Sex: Male
  Weight: 53.61 kg

DRUGS (1)
  1. TRESIBA FLEXTOUCH U200 [Suspect]
     Active Substance: INSULIN DEGLUDEC
     Indication: TYPE 2 DIABETES MELLITUS
     Dosage: 60 U, QD IN AM
     Route: 058
     Dates: start: 20160731, end: 20160808

REACTIONS (11)
  - Facial bones fracture [Not Recovered/Not Resolved]
  - Prescribed overdose [Recovered/Resolved]
  - Radial nerve injury [Not Recovered/Not Resolved]
  - Swollen tongue [Recovering/Resolving]
  - Pharyngeal oedema [Recovering/Resolving]
  - Hypoaesthesia [Not Recovered/Not Resolved]
  - Shock hypoglycaemic [Recovering/Resolving]
  - Fall [Not Recovered/Not Resolved]
  - Paralysis [Recovering/Resolving]
  - Dyspnoea [Recovering/Resolving]
  - Anxiety [Recovering/Resolving]

NARRATIVE: CASE EVENT DATE: 20160806
